FAERS Safety Report 23886751 (Version 3)
Quarter: 2024Q4

REPORT INFORMATION
  Report Type: Spontaneous
  Country: US (occurrence: US)
  Receive Date: 20240522
  Receipt Date: 20241125
  Transmission Date: 20250115
  Serious: Yes (Other)
  Sender: NOVARTIS
  Company Number: US-002147023-NVSC2024US035031

PATIENT
  Age: 57 Year
  Sex: Female

DRUGS (3)
  1. FABHALTA [Suspect]
     Active Substance: IPTACOPAN HYDROCHLORIDE
     Indication: Paroxysmal nocturnal haemoglobinuria
     Dosage: 200 MG, BID
     Route: 048
     Dates: start: 20240130
  2. FABHALTA [Suspect]
     Active Substance: IPTACOPAN HYDROCHLORIDE
     Dosage: 2 DOSAGE FORM
     Route: 048
  3. FABHALTA [Suspect]
     Active Substance: IPTACOPAN HYDROCHLORIDE
     Dosage: UNK
     Route: 048

REACTIONS (21)
  - Pneumonia [Not Recovered/Not Resolved]
  - Haemoglobin decreased [Recovered/Resolved]
  - Viral infection [Unknown]
  - Full blood count decreased [Unknown]
  - Fatigue [Recovered/Resolved]
  - Low density lipoprotein decreased [Unknown]
  - Ear infection [Not Recovered/Not Resolved]
  - Sensory loss [Recovering/Resolving]
  - Nerve injury [Recovering/Resolving]
  - Breast mass [Unknown]
  - Myalgia [Not Recovered/Not Resolved]
  - Muscle tightness [Not Recovered/Not Resolved]
  - Dry eye [Not Recovered/Not Resolved]
  - Fall [Unknown]
  - Infection [Not Recovered/Not Resolved]
  - Decreased appetite [Unknown]
  - Feeling hot [Unknown]
  - Dyspnoea [Unknown]
  - Abdominal discomfort [Recovered/Resolved]
  - Diarrhoea [Recovered/Resolved]
  - Headache [Recovered/Resolved]

NARRATIVE: CASE EVENT DATE: 20240130
